FAERS Safety Report 5648262-7 (Version None)
Quarter: 2008Q1

REPORT INFORMATION
  Report Type: 
  Country: None (occurrence: None)
  Receive Date: 20080131
  Receipt Date: 20071004
  Transmission Date: 20080703
  Serious: No
  Sender: FDA-Public Use
  Company Number: US200708002590

PATIENT
  Age: 37 Year
  Sex: Female

DRUGS (8)
  1. BYETTA [Suspect]
     Indication: TYPE 2 DIABETES MELLITUS
     Dosage: 10 UG, SUBCUTANEOUS ; 5 UG, DAILY (1/D), SUBCUTANEOUS
     Route: 058
     Dates: start: 20070810, end: 20070824
  2. BYETTA [Suspect]
     Dosage: 5 UG, 2/D, SUBCUTANEOUS
     Route: 058
     Dates: start: 20070801
  3. GLUCOPHAGE [Concomitant]
  4. PREDNISONE TAB [Concomitant]
  5. PERCOCET [Concomitant]
  6. MEDROL [Concomitant]
  7. ZITHROMAX [Concomitant]
  8. LEVAQUIN [Concomitant]

REACTIONS (8)
  - BLOOD GLUCOSE INCREASED [None]
  - BRONCHITIS [None]
  - DECREASED APPETITE [None]
  - DRUG DISPENSING ERROR [None]
  - LARYNGITIS [None]
  - NASOPHARYNGITIS [None]
  - PRODUCTIVE COUGH [None]
  - SNEEZING [None]
